FAERS Safety Report 8877390 (Version 2)
Quarter: 2012Q4

REPORT INFORMATION
  Report Type: 
  Country: US (occurrence: US)
  Receive Date: 20121024
  Receipt Date: 20121226
  Transmission Date: 20130627
  Serious: No
  Sender: FDA-Public Use
  Company Number: US-PFIZER INC-2012265470

PATIENT
  Age: 63 Year
  Sex: Female
  Weight: 66.67 kg

DRUGS (5)
  1. LIPITOR [Suspect]
     Indication: CORONARY HEART DISEASE
     Dosage: 10 mg, daily
     Dates: end: 201110
  2. LIPITOR [Suspect]
     Dosage: 20 mg, daily
     Dates: start: 201110, end: 201206
  3. LIPITOR [Suspect]
     Dosage: 30 mg, daily
     Dates: start: 201206, end: 2012
  4. LIPITOR [Suspect]
     Dosage: 10 mg, daily
     Dates: start: 201208, end: 201210
  5. LIPITOR [Suspect]
     Dosage: 20 mg, daily
     Dates: start: 201210

REACTIONS (3)
  - Muscle spasms [Not Recovered/Not Resolved]
  - Drug intolerance [Unknown]
  - Product quality issue [Unknown]
